FAERS Safety Report 11451850 (Version 3)
Quarter: 2016Q1

REPORT INFORMATION
  Report Type: Report from Study
  Country: BR (occurrence: BR)
  Receive Date: 20150903
  Receipt Date: 20160127
  Transmission Date: 20160525
  Serious: Yes (Hospitalization, Other)
  Sender: FDA-Public Use
  Company Number: BR-ROCHE-1628594

PATIENT
  Sex: Female
  Weight: 85 kg

DRUGS (14)
  1. ACTEMRA [Suspect]
     Active Substance: TOCILIZUMAB
     Route: 042
     Dates: start: 20151014
  2. PREDNISONE. [Concomitant]
     Active Substance: PREDNISONE
     Route: 065
  3. TRAMAL [Concomitant]
     Active Substance: TRAMADOL
  4. NOVALGIN [Concomitant]
     Active Substance: METAMIZOLE SODIUM
     Indication: PAIN
  5. ACTEMRA [Suspect]
     Active Substance: TOCILIZUMAB
     Indication: RHEUMATOID ARTHRITIS
     Route: 042
     Dates: start: 20151114
  6. METICORTEN [Concomitant]
     Active Substance: PREDNISONE
     Route: 065
  7. LYRICA [Concomitant]
     Active Substance: PREGABALIN
     Route: 065
  8. OMEPRAZOLE. [Concomitant]
     Active Substance: OMEPRAZOLE
     Indication: GASTRIC DISORDER
  9. CORTISONE [Concomitant]
     Active Substance: CORTISONE\HYDROCORTISONE
     Route: 065
  10. PANTOPRAZOLE [Concomitant]
     Active Substance: PANTOPRAZOLE SODIUM
     Route: 065
  11. FLANCOX [Concomitant]
     Active Substance: ETODOLAC
     Route: 065
  12. ARADOIS [Concomitant]
     Active Substance: LOSARTAN POTASSIUM
     Route: 065
  13. FORXIGA [Concomitant]
     Active Substance: DAPAGLIFLOZIN
     Dosage: IN THE MORNING
     Route: 065
  14. GLIFAGE [Concomitant]
     Active Substance: METFORMIN HYDROCHLORIDE
     Dosage: AT NIGHT
     Route: 065

REACTIONS (25)
  - Inflammation [Unknown]
  - Hypersensitivity [Unknown]
  - Fatigue [Not Recovered/Not Resolved]
  - Headache [Unknown]
  - Thirst [Unknown]
  - Diabetes mellitus [Not Recovered/Not Resolved]
  - Asthenia [Unknown]
  - Malaise [Unknown]
  - Vascular rupture [Unknown]
  - Thyroid disorder [Unknown]
  - Pain [Unknown]
  - Vein disorder [Not Recovered/Not Resolved]
  - Vomiting [Unknown]
  - Rheumatoid arthritis [Not Recovered/Not Resolved]
  - Pancreatitis [Unknown]
  - Blood pressure fluctuation [Unknown]
  - Haematoma [Unknown]
  - Decreased appetite [Unknown]
  - Syncope [Unknown]
  - Decreased activity [Unknown]
  - Swelling [Not Recovered/Not Resolved]
  - Hypertension [Unknown]
  - Parathyroid disorder [Not Recovered/Not Resolved]
  - Depression [Not Recovered/Not Resolved]
  - Quality of life decreased [Unknown]
